FAERS Safety Report 22009624 (Version 1)
Quarter: 2023Q1

REPORT INFORMATION
  Report Type: Spontaneous
  Country: US (occurrence: US)
  Receive Date: 20230220
  Receipt Date: 20230220
  Transmission Date: 20230418
  Serious: Yes (Other)
  Sender: FDA-Public Use
  Company Number: US-MLMSERVICE-20230202-4077964-1

PATIENT

DRUGS (24)
  1. BUPROPION [Interacting]
     Active Substance: BUPROPION
     Indication: Major depression
     Dosage: 300 MILLIGRAM, DAILY
     Route: 065
     Dates: end: 202109
  2. BUPROPION [Interacting]
     Active Substance: BUPROPION
     Indication: Generalised anxiety disorder
  3. FLUOXETINE [Interacting]
     Active Substance: FLUOXETINE HYDROCHLORIDE
     Indication: Major depression
     Dosage: 40 MG, DAILY
     Route: 065
  4. FLUOXETINE [Interacting]
     Active Substance: FLUOXETINE HYDROCHLORIDE
     Indication: Generalised anxiety disorder
  5. DOXEPIN [Interacting]
     Active Substance: DOXEPIN
     Indication: Major depression
     Dosage: 75 MILLIGRAM, QD (NIGHTLY)
     Route: 065
     Dates: end: 2020
  6. DOXEPIN [Interacting]
     Active Substance: DOXEPIN
     Indication: Generalised anxiety disorder
  7. DILTIAZEM [Interacting]
     Active Substance: DILTIAZEM
     Indication: Cardiomyopathy
     Dosage: 120 MILLIGRAM, QD
     Route: 065
  8. ACETAMINOPHEN\HYDROCODONE [Interacting]
     Active Substance: ACETAMINOPHEN\HYDROCODONE
     Indication: Pain
     Dosage: 5 MILLIGRAM, PRN
     Route: 065
     Dates: end: 2019
  9. ACETAMINOPHEN\HYDROCODONE [Interacting]
     Active Substance: ACETAMINOPHEN\HYDROCODONE
     Dosage: 10 MG?325 MG FOUR TIMES DAILY
     Route: 065
     Dates: start: 2019, end: 202109
  10. PRAMIPEXOLE [Concomitant]
     Active Substance: PRAMIPEXOLE
     Indication: Restless legs syndrome
     Dosage: 1 MILLIGRAM, TID (8 HOURS)
     Route: 065
  11. ATORVASTATIN [Concomitant]
     Active Substance: ATORVASTATIN
     Indication: Hyperlipidaemia
     Dosage: 80 MILLIGRAM, QD (NIGHTLY)
     Route: 065
  12. FERROUS SULFATE [Concomitant]
     Active Substance: FERROUS SULFATE
     Indication: Hypovitaminosis
     Dosage: 325 MILLIGRAM DAILY
     Route: 065
  13. ALBUTEROL\IPRATROPIUM [Concomitant]
     Active Substance: ALBUTEROL\IPRATROPIUM
     Indication: Asthma
     Dosage: UNK, PRN2.5?0.5 MG/3 ML EVERY 6 H AS NEEDED
     Route: 065
  14. LEVOTHYROXINE [Concomitant]
     Active Substance: LEVOTHYROXINE
     Indication: Hypothyroidism
     Dosage: 50 MICROGRAM,DAILY
     Route: 065
  15. SITAGLIPTIN [Concomitant]
     Active Substance: SITAGLIPTIN
     Indication: Diabetes mellitus
     Dosage: 100 MG, DAILY
     Route: 065
  16. BACLOFEN [Concomitant]
     Active Substance: BACLOFEN
     Indication: Muscle spasms
     Dosage: 10 MILLIGRAM, PRN (EVERY 6 HOURS AS NEEDED)
     Route: 065
  17. GLIPIZIDE [Concomitant]
     Active Substance: GLIPIZIDE
     Indication: Diabetes mellitus
     Dosage: 5 MILLIGRAM, DAILY
     Route: 065
  18. GABAPENTIN [Concomitant]
     Active Substance: GABAPENTIN
     Indication: Neuropathy peripheral
     Dosage: 800 MILLIGRAM, QID (FOUR TIMES DAILY)
     Route: 065
  19. MONTELUKAST [Concomitant]
     Active Substance: MONTELUKAST SODIUM
     Indication: Asthma
     Dosage: 10 MILLIGRAM, QD (NIGHTLY)
     Route: 065
  20. FUROSEMIDE [Concomitant]
     Active Substance: FUROSEMIDE
     Indication: Cardiomyopathy
     Dosage: 40 MILLIGRAM, DAILY
     Route: 065
  21. CALCIUM CARBONATE [Concomitant]
     Active Substance: CALCIUM CARBONATE
     Indication: Hypovitaminosis
     Dosage: 1250 MILLIGRAM, DAILY
     Route: 065
  22. ASPIRIN [Concomitant]
     Active Substance: ASPIRIN
     Indication: Cardiomyopathy
     Dosage: 81 MILLIGRAM, DAILY
     Route: 065
  23. LOSARTAN [Concomitant]
     Active Substance: LOSARTAN
     Indication: Cardiomyopathy
     Dosage: 25 MILLIGRAM, DAILY
     Route: 065
  24. METFORMIN [Concomitant]
     Active Substance: METFORMIN HYDROCHLORIDE
     Indication: Diabetes mellitus
     Dosage: 1000 MILLIGRAM, BID (12 HOURS)
     Route: 065

REACTIONS (7)
  - Sedation complication [Recovered/Resolved]
  - Fall [Recovered/Resolved]
  - Joint injury [Recovered/Resolved]
  - Drug-genetic interaction [Recovered/Resolved]
  - Drug interaction [Recovered/Resolved]
  - Inadequate analgesia [Recovered/Resolved]
  - Treatment failure [Unknown]

NARRATIVE: CASE EVENT DATE: 20200101
